FAERS Safety Report 4486620-7 (Version None)
Quarter: 2004Q4

REPORT INFORMATION
  Report Type: 
  Country: None (occurrence: None)
  Receive Date: 20041027
  Receipt Date: 20041021
  Transmission Date: 20050328
  Serious: Yes (Other)
  Sender: FDA-Public Use
  Company Number: PHBS2004IT14069

PATIENT
  Sex: Male

DRUGS (1)
  1. CO-TAREG [Suspect]
     Indication: HYPERTENSION
     Dates: start: 20040924, end: 20041009

REACTIONS (3)
  - CARDIAC FIBRILLATION [None]
  - EXTRASYSTOLES [None]
  - FEELING ABNORMAL [None]
